FAERS Safety Report 13401186 (Version 1)
Quarter: 2017Q2

REPORT INFORMATION
  Report Type: Spontaneous
  Country: AU (occurrence: AU)
  Receive Date: 20170404
  Receipt Date: 20170404
  Transmission Date: 20170830
  Serious: Yes (Other)
  Sender: FDA-Public Use
  Company Number: AU-009507513-1703AUS013023

PATIENT
  Sex: Female

DRUGS (1)
  1. VYTORIN [Suspect]
     Active Substance: EZETIMIBE\SIMVASTATIN
     Dosage: UNK
     Route: 048
     Dates: start: 2009

REACTIONS (11)
  - Therapeutic response changed [Unknown]
  - Dry mouth [Unknown]
  - Confusional state [Unknown]
  - Visual impairment [Unknown]
  - Burning sensation [Unknown]
  - Paraesthesia [Unknown]
  - Dyspnoea [Unknown]
  - Coeliac disease [Unknown]
  - Dysphemia [Unknown]
  - Adverse drug reaction [Unknown]
  - Palpitations [Unknown]

NARRATIVE: CASE EVENT DATE: 2015
